FAERS Safety Report 22185606 (Version 1)
Quarter: 2023Q2

REPORT INFORMATION
  Report Type: Spontaneous
  Country: US (occurrence: US)
  Receive Date: 20230407
  Receipt Date: 20230407
  Transmission Date: 20230722
  Serious: No
  Sender: FDA-Public Use
  Company Number: US-ABBVIE-4716574

PATIENT
  Age: 48 Year
  Sex: Female
  Weight: 68 kg

DRUGS (4)
  1. HUMIRA [Suspect]
     Active Substance: ADALIMUMAB
     Indication: Rheumatoid arthritis
     Dosage: FORM STRENGTH 40 MG?THE INJECTION SITE HARDNESS, ITCHING AND REDNESS WITH ONSET 17 MAR 2023 HAS C...
     Route: 058
     Dates: start: 202301
  2. LEFLUNOMIDE [Concomitant]
     Active Substance: LEFLUNOMIDE
     Indication: Rheumatoid arthritis
  3. ATORVASTATIN [Concomitant]
     Active Substance: ATORVASTATIN
     Indication: Blood cholesterol increased
  4. PROZAC [Concomitant]
     Active Substance: FLUOXETINE HYDROCHLORIDE
     Indication: Anxiety

REACTIONS (8)
  - Injection site induration [Recovering/Resolving]
  - Device issue [Unknown]
  - Injection site erythema [Recovering/Resolving]
  - Injection site pruritus [Recovered/Resolved]
  - Injection site irritation [Recovering/Resolving]
  - Injection site induration [Recovered/Resolved]
  - Injection site erythema [Recovered/Resolved]
  - Injection site pruritus [Recovering/Resolving]

NARRATIVE: CASE EVENT DATE: 20230317
